FAERS Safety Report 9216243 (Version 1)
Quarter: 2013Q2

REPORT INFORMATION
  Report Type: Spontaneous
  Country: PR (occurrence: PR)
  Receive Date: 20130408
  Receipt Date: 20130408
  Transmission Date: 20140414
  Serious: Yes (Life-Threatening, Hospitalization, Other)
  Sender: FDA-Public Use
  Company Number: US-ASTELLAS-2013US003688

PATIENT
  Age: 70 Year
  Sex: Male

DRUGS (1)
  1. PROGRAF [Suspect]
     Indication: LIVER TRANSPLANT
     Dosage: 1 MG, UID/QD
     Route: 048

REACTIONS (7)
  - Bronchial disorder [Unknown]
  - Liver disorder [Unknown]
  - Renal impairment [Unknown]
  - Pneumonia [Unknown]
  - Lung disorder [Unknown]
  - Hypertension [Unknown]
  - Fatigue [Unknown]
